FAERS Safety Report 5476159-4 (Version None)
Quarter: 2007Q4

REPORT INFORMATION
  Report Type: 
  Country: None (occurrence: None)
  Receive Date: 20071003
  Receipt Date: 20070921
  Transmission Date: 20080405
  Serious: Yes (Death, Other)
  Sender: FDA-Public Use
  Company Number: HQWYE968404SEP07

PATIENT
  Sex: Male
  Weight: 56 kg

DRUGS (5)
  1. TACROLIMUS [Interacting]
     Indication: PROPHYLAXIS AGAINST TRANSPLANT REJECTION
     Dosage: UNSPECIFIED
     Dates: end: 20070701
  2. ATENOLOL [Concomitant]
     Indication: HYPERTENSION
     Dosage: UNSPECIFIED
     Dates: start: 20070627
  3. MYCOPHENOLATE MOFETIL [Concomitant]
     Indication: PROPHYLAXIS AGAINST TRANSPLANT REJECTION
     Dosage: UNSPECIFIED
  4. RAPAMUNE [Suspect]
     Indication: PROPHYLAXIS AGAINST TRANSPLANT REJECTION
     Route: 048
     Dates: start: 20070702, end: 20070815
  5. ENALAPRIL MALEATE [Concomitant]
     Indication: HYPERTENSION
     Dosage: UNSPECIFIED
     Dates: start: 20070627

REACTIONS (6)
  - ACUTE MYOCARDIAL INFARCTION [None]
  - DRUG INTERACTION [None]
  - INTESTINAL ISCHAEMIA [None]
  - LIVER TRANSPLANT REJECTION [None]
  - RENAL FAILURE ACUTE [None]
  - RHABDOMYOLYSIS [None]
